FAERS Safety Report 26200882 (Version 1)
Quarter: 2025Q4

REPORT INFORMATION
  Report Type: Spontaneous
  Country: ET (occurrence: None)
  Receive Date: 20251226
  Receipt Date: 20251226
  Transmission Date: 20260117
  Serious: Yes (Hospitalization)
  Sender: UMEDICA LABS
  Company Number: ET-Umedica-000729

PATIENT
  Age: 23 Year
  Sex: Male

DRUGS (2)
  1. DICLOFENAC POTASSIUM [Suspect]
     Active Substance: DICLOFENAC POTASSIUM
     Indication: Product used for unknown indication
     Dosage: INGESTED UNKNOWN QUANTITY
     Route: 048
  2. AMLODIPINE [Suspect]
     Active Substance: AMLODIPINE BESYLATE
     Indication: Product used for unknown indication
     Dosage: INGESTED MORE THAN 30 TABLETS (ESTIMATED GREATER THAN OR EQUAL TO 300 MG)
     Route: 048

REACTIONS (3)
  - Acute kidney injury [Recovered/Resolved]
  - Suicide attempt [Unknown]
  - Intentional product use issue [Unknown]
